FAERS Safety Report 12547981 (Version 1)
Quarter: 2016Q3

REPORT INFORMATION
  Report Type: Spontaneous
  Country: US (occurrence: None)
  Receive Date: 20160711
  Receipt Date: 20160711
  Transmission Date: 20161109
  Serious: Yes (Other)
  Sender: FDA-Public Use
  Company Number: None

PATIENT
  Age: 29 Year
  Sex: Female
  Weight: 52.16 kg

DRUGS (6)
  1. BUSPIRONE [Concomitant]
     Active Substance: BUSPIRONE HYDROCHLORIDE
  2. ZINC PICLIONATE [Concomitant]
  3. ALLEGRA [Concomitant]
     Active Substance: FEXOFENADINE HYDROCHLORIDE
  4. AMPHET/DEXTR 30MG TAB, 30 MG AUROBINDO [Suspect]
     Active Substance: AMPHETAMINE ASPARTATE\AMPHETAMINE SULFATE\DEXTROAMPHETAMINE SACCHARATE\DEXTROAMPHETAMINE SULFATE
     Indication: ATTENTION DEFICIT/HYPERACTIVITY DISORDER
     Route: 048
     Dates: start: 20160707, end: 20160709
  5. CHELATED COPPER [Concomitant]
  6. VITAMIN D3 [Concomitant]
     Active Substance: CHOLECALCIFEROL

REACTIONS (9)
  - Flushing [None]
  - Oral discomfort [None]
  - Dry eye [None]
  - Erythema [None]
  - Chest pain [None]
  - Arthralgia [None]
  - Muscle spasms [None]
  - Hypoaesthesia [None]
  - Rash [None]

NARRATIVE: CASE EVENT DATE: 20160708
